FAERS Safety Report 5190489-5 (Version None)
Quarter: 2006Q4

REPORT INFORMATION
  Report Type: 
  Country: None (occurrence: None)
  Receive Date: 20061222
  Receipt Date: 20060102
  Transmission Date: 20070319
  Serious: Yes (Death, Hospitalization)
  Sender: FDA-Public Use
  Company Number: DK-GLAXOSMITHKLINE-B0405123A

PATIENT
  Age: 68 Year
  Sex: Male
  Weight: 87.6 kg

DRUGS (5)
  1. ROSIGLITAZONE [Suspect]
     Route: 048
     Dates: start: 20030331, end: 20060102
  2. SELO-ZOK [Concomitant]
  3. CORODIL [Concomitant]
  4. MAGNYL [Concomitant]
  5. GLIMEPIRIDE [Concomitant]

REACTIONS (6)
  - CONVULSION [None]
  - DEATH [None]
  - FALL [None]
  - LOSS OF CONSCIOUSNESS [None]
  - LUNG NEOPLASM MALIGNANT [None]
  - METASTASES TO CENTRAL NERVOUS SYSTEM [None]
